FAERS Safety Report 11291573 (Version 1)
Quarter: 2015Q3

REPORT INFORMATION
  Report Type: Spontaneous
  Country: US (occurrence: None)
  Receive Date: 20150721
  Receipt Date: 20150721
  Transmission Date: 20151125
  Serious: Yes (Disabling, Other)
  Sender: FDA-Public Use
  Company Number: None

PATIENT
  Age: 61 Year
  Sex: Female
  Weight: 70.76 kg

DRUGS (5)
  1. CALCIUM [Concomitant]
     Active Substance: CALCIUM
  2. VITAMIN B2 [Concomitant]
     Active Substance: RIBOFLAVIN
  3. ST. JOHNS WORT [Concomitant]
     Active Substance: HYPERICUM PERFORATUM
  4. ARIMIDEX [Suspect]
     Active Substance: ANASTROZOLE
     Indication: BREAST CANCER STAGE I
     Dosage: 30 PILLS 1 DAILY 1 DAILY
     Dates: start: 20110421, end: 20150604
  5. MAGNESIUM [Concomitant]
     Active Substance: MAGNESIUM

REACTIONS (3)
  - Ventricular hypertrophy [None]
  - Left atrial dilatation [None]
  - Cardiac disorder [None]

NARRATIVE: CASE EVENT DATE: 20150602
